FAERS Safety Report 25226161 (Version 1)
Quarter: 2025Q2

REPORT INFORMATION
  Report Type: Spontaneous
  Country: US (occurrence: US)
  Receive Date: 20250422
  Receipt Date: 20250422
  Transmission Date: 20250716
  Serious: No
  Sender: BIOVITRUM
  Company Number: US-BIOVITRUM-2025-US-005556

PATIENT
  Age: 48 Year
  Sex: Female

DRUGS (1)
  1. VONJO [Suspect]
     Active Substance: PACRITINIB
     Indication: Myeloproliferative neoplasm
     Route: 048
     Dates: start: 20230701

REACTIONS (3)
  - Sleep apnoea syndrome [Unknown]
  - Haemoglobin decreased [Unknown]
  - Fatigue [Unknown]
